FAERS Safety Report 6070404-2 (Version None)
Quarter: 2009Q1

REPORT INFORMATION
  Report Type: 
  Country: None (occurrence: None)
  Receive Date: 20090209
  Receipt Date: 20090129
  Transmission Date: 20090719
  Serious: Yes (Hospitalization)
  Sender: FDA-Public Use
  Company Number: US-JNJFOC-20081201429

PATIENT
  Age: 75 Year
  Sex: Female

DRUGS (1)
  1. DORIBAX [Suspect]
     Indication: RESPIRATORY TRACT INFECTION
     Dosage: END DATE 03-DEC-2008
     Route: 041

REACTIONS (1)
  - PROTHROMBIN TIME PROLONGED [None]
